FAERS Safety Report 9124023 (Version 2)
Quarter: 2013Q3

REPORT INFORMATION
  Report Type: Spontaneous
  Country: RO (occurrence: RO)
  Receive Date: 20130227
  Receipt Date: 20130701
  Transmission Date: 20140515
  Serious: Yes (Other)
  Sender: FDA-Public Use
  Company Number: RO-JNJFOC-20130214692

PATIENT
  Age: 79 Year
  Sex: Female

DRUGS (2)
  1. REMINYL [Suspect]
     Indication: DEMENTIA ALZHEIMER^S TYPE
     Route: 048
     Dates: start: 20130201, end: 20130220
  2. RIVOTRIL [Concomitant]
     Indication: INSOMNIA
     Dosage: IN THE EVENING
     Route: 065

REACTIONS (2)
  - Dyspepsia [Recovered/Resolved]
  - Oral discomfort [Recovered/Resolved]
